FAERS Safety Report 22807484 (Version 3)
Quarter: 2024Q1

REPORT INFORMATION
  Report Type: Report from Study
  Country: JP (occurrence: JP)
  Receive Date: 20230810
  Receipt Date: 20240129
  Transmission Date: 20240410
  Serious: Yes (Hospitalization)
  Sender: FDA-Public Use
  Company Number: JP-ACTELION-A-CH2018-182292

PATIENT
  Age: 65 Year
  Sex: Male
  Weight: 64.2 kg

DRUGS (33)
  1. UPTRAVI [Suspect]
     Active Substance: SELEXIPAG
     Indication: Pulmonary hypertension
     Dosage: 0.2 MG, QD
     Route: 048
     Dates: start: 20171026, end: 20171029
  2. UPTRAVI [Suspect]
     Active Substance: SELEXIPAG
     Route: 048
     Dates: start: 20171030, end: 20171118
  3. TRAMADOL [Concomitant]
     Active Substance: TRAMADOL\TRAMADOL HYDROCHLORIDE
     Indication: Analgesic therapy
     Dosage: 100 MG, QD
     Dates: start: 20171219
  4. BISOPROLOL FUMARATE [Concomitant]
     Active Substance: BISOPROLOL FUMARATE
     Indication: Hypertension
     Dosage: 0.625 MG, QD
     Dates: end: 20180209
  5. EDOXABAN TOSYLATE [Concomitant]
     Active Substance: EDOXABAN TOSYLATE
     Indication: Arrhythmia
     Dosage: 60 MG, QD
     Dates: end: 20180209
  6. CLONAZEPAM [Concomitant]
     Active Substance: CLONAZEPAM
     Indication: Intention tremor
     Dosage: 1.5 MG, QD
     Dates: end: 20171103
  7. LANSOPRAZOLE [Concomitant]
     Active Substance: LANSOPRAZOLE
     Indication: Oesophageal carcinoma
     Dosage: 15 MG, QD
     Dates: end: 20171103
  8. PRIMIDONE [Concomitant]
     Active Substance: PRIMIDONE
     Indication: Intention tremor
     Dosage: 500 MG, QD
     Dates: end: 20180215
  9. ALLOID G [Concomitant]
     Active Substance: SODIUM ALGINATE
     Dosage: 30 ML, QD
     Dates: end: 20171202
  10. ACETAMINOPHEN\CAFFEINE\PROMETHAZINE\SALICYLAMIDE [Concomitant]
     Active Substance: ACETAMINOPHEN\CAFFEINE\PROMETHAZINE\SALICYLAMIDE
     Indication: Prophylaxis
     Dosage: 3 G, QD
     Dates: start: 20171106, end: 20171110
  11. CALONAL [Concomitant]
     Active Substance: ACETAMINOPHEN
     Indication: Prophylaxis
     Dosage: 200 ML, QD
     Dates: end: 20171103
  12. CALONAL [Concomitant]
     Active Substance: ACETAMINOPHEN
     Dates: start: 20171106, end: 20171122
  13. SODIUM PICOSULFATE [Concomitant]
     Active Substance: SODIUM PICOSULFATE
     Indication: Constipation
     Dosage: UNK
     Dates: start: 20171109
  14. POLAPREZINC [Concomitant]
     Active Substance: POLAPREZINC
     Dosage: 150 MG, QD
     Dates: start: 20171115, end: 20171202
  15. NALDEMEDINE TOSYLATE [Concomitant]
     Active Substance: NALDEMEDINE TOSYLATE
     Indication: Constipation
     Dosage: 0.2 MG, QD
     Dates: start: 20171120, end: 20171121
  16. QVAR [Concomitant]
     Active Substance: BECLOMETHASONE DIPROPIONATE
     Dosage: 6 DF, QD
  17. URSO [Concomitant]
     Active Substance: URSODIOL
     Indication: Hepatic enzyme increased
     Dosage: 300 MG, QD
     Dates: start: 20171120, end: 20180209
  18. POTASSIUM CHLORIDE [Concomitant]
     Active Substance: POTASSIUM CHLORIDE
     Indication: Hypokalaemia
     Dosage: 2 G, QD
     Dates: start: 20171216, end: 20180209
  19. MIYA-BM [Concomitant]
     Active Substance: CLOSTRIDIUM BUTYRICUM SPORES STRAIN M-55
     Indication: Constipation
     Dosage: 2 DF, QD
     Dates: start: 20170118, end: 20180209
  20. BISOLVON [Concomitant]
     Active Substance: BROMHEXINE HYDROCHLORIDE
     Indication: Sputum retention
     Dosage: 12 MG, QD
     Dates: start: 20171221, end: 20180209
  21. ROZEREM [Concomitant]
     Active Substance: RAMELTEON
     Indication: Insomnia
     Dosage: 8 MG, QD
     Dates: start: 20171228, end: 20180209
  22. CALCIUM POLYCARBOPHIL [Concomitant]
     Active Substance: CALCIUM POLYCARBOPHIL
     Indication: Constipation
     Dosage: 1.5 G, QD
     Dates: start: 20180113, end: 20180209
  23. BELSOMRA [Concomitant]
     Active Substance: SUVOREXANT
     Indication: Insomnia
     Dosage: 15 MG, QD
     Dates: start: 20171211, end: 20180209
  24. POTASSIUM ASPARTATE [Concomitant]
     Active Substance: POTASSIUM ASPARTATE
     Indication: Hypokalaemia
     Dosage: 1500 MG, QD
     Dates: start: 20171212, end: 20171215
  25. VONOPRAZAN FUMARATE [Concomitant]
     Active Substance: VONOPRAZAN FUMARATE
     Dosage: 20 MG, QD
     Dates: start: 20171214, end: 20180209
  26. DEXTROMETHORPHAN HYDROBROMIDE [Concomitant]
     Active Substance: DEXTROMETHORPHAN HYDROBROMIDE
     Indication: Cough
     Dosage: 90 MG, QD
     Dates: start: 20171214, end: 20180209
  27. HERBALS [Concomitant]
     Active Substance: HERBALS
     Dosage: 2.5 G, QD
     Dates: start: 20171124, end: 20180209
  28. GASCON [DIMETICONE] [Concomitant]
     Indication: Constipation
     Dosage: 18 ML, QD
     Dates: start: 20171127, end: 20180209
  29. LINZESS [Concomitant]
     Active Substance: LINACLOTIDE
     Indication: Constipation
     Dosage: 0.5 MG, QD
     Dates: start: 20171130, end: 20171202
  30. BISACODYL [Concomitant]
     Active Substance: BISACODYL
     Indication: Constipation
     Dosage: 10 MG, QD
     Dates: start: 20171204, end: 20171208
  31. CODEINE PHOSPHATE [Concomitant]
     Active Substance: CODEINE PHOSPHATE
     Indication: Cough
     Dosage: 60 MG, QD
     Dates: start: 20171205, end: 20180209
  32. ATROVENT [Concomitant]
     Active Substance: IPRATROPIUM BROMIDE
     Dates: start: 20171118
  33. BISOPROLOL [Concomitant]
     Active Substance: BISOPROLOL\BISOPROLOL FUMARATE

REACTIONS (6)
  - Pulmonary oedema [Recovered/Resolved with Sequelae]
  - Pneumonia aspiration [Recovering/Resolving]
  - Supraventricular tachycardia [Recovered/Resolved]
  - Platelet count decreased [Recovered/Resolved]
  - Constipation [Recovering/Resolving]
  - Off label use [Unknown]

NARRATIVE: CASE EVENT DATE: 20171101
